FAERS Safety Report 8989352 (Version 2)
Quarter: 2013Q1

REPORT INFORMATION
  Report Type: Report from Study
  Country: JP (occurrence: JP)
  Receive Date: 20121228
  Receipt Date: 20130207
  Transmission Date: 20140127
  Serious: Yes (Death, Life-Threatening, Hospitalization, Other)
  Sender: FDA-Public Use
  Company Number: JP-GENZYME-THYM-1003554

PATIENT
  Age: 53 Year
  Sex: Female
  Weight: 47 kg

DRUGS (17)
  1. THYMOGLOBULIN [Suspect]
     Indication: BONE MARROW CONDITIONING REGIMEN
     Dosage: 115 MG, QD
     Route: 065
     Dates: start: 20120324, end: 20120325
  2. THYMOGLOBULIN [Suspect]
     Dosage: 50 MG, QD
     Route: 065
     Dates: start: 20120414, end: 20120414
  3. FILGRASTIM [Suspect]
     Indication: DELAYED ENGRAFTMENT
     Dosage: UNK
     Route: 065
     Dates: start: 20120415, end: 20120510
  4. FILGRASTIM [Suspect]
     Dosage: UNK
     Route: 065
     Dates: start: 20120608, end: 20120608
  5. FILGRASTIM [Suspect]
     Dosage: UNK
     Dates: start: 20120618, end: 20120629
  6. INFLIXIMAB [Suspect]
     Indication: GRAFT VERSUS HOST DISEASE IN INTESTINE
     Dosage: UNK
     Route: 065
     Dates: start: 20120416, end: 20120416
  7. SIVELESTAT [Suspect]
     Indication: MYELODYSPLASTIC SYNDROME
     Dosage: UNK
     Route: 065
     Dates: start: 20120417, end: 20120424
  8. TACROLIMUS [Suspect]
     Indication: MYELODYSPLASTIC SYNDROME
     Dosage: UNK
     Route: 065
     Dates: start: 20120405, end: 20120514
  9. EPTACOG ALFA [Suspect]
     Indication: PULMONARY ALVEOLAR HAEMORRHAGE
     Dosage: UNK
     Route: 065
     Dates: start: 20120628, end: 20120629
  10. EPTACOG ALFA [Suspect]
     Indication: MYELODYSPLASTIC SYNDROME
  11. CICLOSPORIN [Suspect]
     Indication: GRAFT VERSUS HOST DISEASE
     Dosage: UNK
     Route: 065
     Dates: start: 20120326, end: 20120411
  12. CICLOSPORIN [Suspect]
     Indication: PROPHYLAXIS
     Dosage: UNK
     Route: 065
     Dates: start: 20120517, end: 20120626
  13. CYTARABINE [Suspect]
     Indication: MYELODYSPLASTIC SYNDROME
     Dosage: UNK
     Route: 065
     Dates: start: 20120314, end: 20120319
  14. LEVOFLOXACIN [Suspect]
     Indication: PROPHYLAXIS
     Dosage: UNK
     Route: 065
     Dates: start: 20120316, end: 20120416
  15. URSODEOXYCHOLIC ACID [Suspect]
     Indication: PROPHYLAXIS
     Dosage: UNK
     Route: 065
     Dates: start: 20120316, end: 20120416
  16. ACICLOVIR [Suspect]
     Indication: PROPHYLAXIS
     Dosage: UNK
     Route: 065
     Dates: start: 20120320, end: 20120416
  17. TOTAL BODY IRRADIATION [Suspect]
     Indication: BONE MARROW CONDITIONING REGIMEN
     Dosage: UNK (3 GY)
     Route: 065
     Dates: start: 20120326, end: 20120326

REACTIONS (13)
  - Jaundice [Fatal]
  - Thrombotic microangiopathy [Fatal]
  - Generalised oedema [Fatal]
  - Herpes simplex meningoencephalitis [Recovered/Resolved]
  - Febrile neutropenia [Recovered/Resolved]
  - Acute graft versus host disease in skin [Fatal]
  - Acute graft versus host disease in liver [Fatal]
  - Acute graft versus host disease [Fatal]
  - Intestinal ulcer [Recovered/Resolved]
  - Hyperamylasaemia [Recovered/Resolved]
  - Sepsis [Recovered/Resolved]
  - Staphylococcal sepsis [Recovered/Resolved]
  - Stenotrophomonas sepsis [Fatal]
